FAERS Safety Report 14036489 (Version 1)
Quarter: 2017Q4

REPORT INFORMATION
  Report Type: Spontaneous
  Country: US (occurrence: US)
  Receive Date: 20171003
  Receipt Date: 20171003
  Transmission Date: 20180321
  Serious: No
  Sender: FDA-Public Use
  Company Number: US-ROCHE-1876515

PATIENT
  Sex: Female
  Weight: 90.35 kg

DRUGS (3)
  1. ZELBORAF [Suspect]
     Active Substance: VEMURAFENIB
     Indication: ADENOCARCINOMA
     Dosage: 4 PILLS 2X/DAY
     Route: 065
     Dates: start: 201609, end: 201612
  2. ZELBORAF [Suspect]
     Active Substance: VEMURAFENIB
     Dosage: 2 PILLS 2X/DAY
     Route: 065
     Dates: start: 201609, end: 201612
  3. ZELBORAF [Suspect]
     Active Substance: VEMURAFENIB
     Dosage: 3 PILLS 2X/DAY
     Route: 065
     Dates: start: 201609, end: 201612

REACTIONS (8)
  - Nausea [Recovering/Resolving]
  - Skin ulcer [Recovering/Resolving]
  - Ulcer haemorrhage [Recovering/Resolving]
  - Ulcer [Recovering/Resolving]
  - Malaise [Recovering/Resolving]
  - Weight increased [Recovering/Resolving]
  - Alopecia [Recovering/Resolving]
  - Scab [Recovering/Resolving]
